FAERS Safety Report 6693561-3 (Version None)
Quarter: 2010Q2

REPORT INFORMATION
  Report Type: 
  Country: None (occurrence: None)
  Receive Date: 20100423
  Receipt Date: 20100416
  Transmission Date: 20101027
  Serious: No
  Sender: FDA-Public Use
  Company Number: US-BIOGENIDEC-2010BI013353

PATIENT
  Age: 51 Year
  Sex: Female

DRUGS (2)
  1. TYSABRI [Suspect]
     Indication: MULTIPLE SCLEROSIS
     Route: 042
     Dates: start: 20080228, end: 20081204
  2. TYSABRI [Suspect]
     Route: 042
     Dates: start: 20100311

REACTIONS (3)
  - HEADACHE [None]
  - JOINT SPRAIN [None]
  - TENDON RUPTURE [None]
